FAERS Safety Report 16160204 (Version 1)
Quarter: 2019Q2

REPORT INFORMATION
  Report Type: Spontaneous
  Country: US (occurrence: US)
  Receive Date: 20190404
  Receipt Date: 20190404
  Transmission Date: 20190711
  Serious: No
  Sender: FDA-Public Use
  Company Number: US-TEVA-2019-US-1035782

PATIENT
  Sex: Female

DRUGS (1)
  1. AJOVY [Suspect]
     Active Substance: FREMANEZUMAB-VFRM
     Indication: PRODUCT USED FOR UNKNOWN INDICATION
     Dosage: UNKNOWN

REACTIONS (7)
  - Palpitations [Unknown]
  - Nightmare [Unknown]
  - Insomnia [Unknown]
  - Feeling abnormal [Unknown]
  - Anxiety [Unknown]
  - Panic attack [Unknown]
  - Headache [Unknown]
